FAERS Safety Report 24605859 (Version 1)
Quarter: 2024Q4

REPORT INFORMATION
  Report Type: Spontaneous
  Country: BR (occurrence: BR)
  Receive Date: 20241111
  Receipt Date: 20241111
  Transmission Date: 20250115
  Serious: Yes (Hospitalization)
  Sender: ORGANON
  Company Number: BR-ORGANON-O2411BRA000502

PATIENT
  Age: 31 Year
  Sex: Female
  Weight: 100 kg

DRUGS (1)
  1. ETONOGESTREL [Suspect]
     Active Substance: ETONOGESTREL
     Indication: Contraception
     Dosage: 1 IMPLANT (LEFT ARM)
     Route: 059
     Dates: start: 20241004

REACTIONS (4)
  - Head discomfort [Recovered/Resolved]
  - Headache [Recovered/Resolved]
  - Diplopia [Recovered/Resolved]
  - Nausea [Recovered/Resolved]

NARRATIVE: CASE EVENT DATE: 20241012
